FAERS Safety Report 7464585-3 (Version None)
Quarter: 2011Q2

REPORT INFORMATION
  Report Type: 
  Country: None (occurrence: None)
  Receive Date: 20110509
  Receipt Date: 20110427
  Transmission Date: 20111010
  Serious: Yes (Other)
  Sender: FDA-Public Use
  Company Number: JP-SANOFI-AVENTIS-2011SA005390

PATIENT
  Age: 65 Year
  Sex: Female

DRUGS (5)
  1. FLUOROURACIL [Concomitant]
     Route: 041
  2. OXALIPLATIN [Suspect]
     Indication: COLON CANCER
     Route: 041
  3. FLUOROURACIL [Concomitant]
     Indication: COLON CANCER
     Route: 040
  4. AVASTIN [Concomitant]
     Indication: COLON CANCER
     Route: 041
  5. CALCIUM LEVOFOLINATE [Concomitant]
     Indication: COLON CANCER
     Route: 041

REACTIONS (1)
  - ILEUS [None]
